FAERS Safety Report 19592008 (Version 5)
Quarter: 2021Q4

REPORT INFORMATION
  Report Type: Spontaneous
  Country: JP (occurrence: JP)
  Receive Date: 20210722
  Receipt Date: 20211011
  Transmission Date: 20220303
  Serious: Yes (Death, Life-Threatening, Hospitalization, Disabling, Other)
  Sender: FDA-Public Use
  Company Number: JP-TAKEDA-2021TJP059885AA

PATIENT
  Age: 8 Decade
  Sex: Male

DRUGS (4)
  1. ALUNBRIG [Suspect]
     Active Substance: BRIGATINIB
     Indication: Non-small cell lung cancer
     Dosage: 90 MILLIGRAM, QD
     Route: 048
     Dates: start: 20210702, end: 20210708
  2. ALUNBRIG [Suspect]
     Active Substance: BRIGATINIB
     Dosage: 180 MILLIGRAM
     Route: 048
     Dates: start: 20210709, end: 202107
  3. ALUNBRIG [Suspect]
     Active Substance: BRIGATINIB
     Dosage: 90 MILLIGRAM
     Route: 048
     Dates: start: 20210716, end: 20210818
  4. COMIRNATY [Suspect]
     Active Substance: TOZINAMERAN
     Indication: Product used for unknown indication
     Dosage: UNK
     Route: 065

REACTIONS (5)
  - Non-small cell lung cancer [Fatal]
  - Interstitial lung disease [Recovered/Resolved]
  - Renal impairment [Recovering/Resolving]
  - Hyperkalaemia [Recovering/Resolving]
  - Hypercalcaemia [Recovering/Resolving]

NARRATIVE: CASE EVENT DATE: 20210712
